FAERS Safety Report 8275318 (Version 3)
Quarter: 2012Q4

REPORT INFORMATION
  Report Type: 
  Country: NL (occurrence: NL)
  Receive Date: 20111205
  Receipt Date: 20121022
  Transmission Date: 20130627
  Serious: Yes (Hospitalization, Other)
  Sender: FDA-Public Use
  Company Number: PHHY2011NL104654

PATIENT
  Age: 77 Year
  Sex: Male

DRUGS (23)
  1. ZOMETA [Suspect]
     Indication: PROSTATE CANCER METASTATIC
     Dosage: 1 DF, (4mg/5ml, once per 28 days)
     Dates: start: 20111028
  2. ZOMETA [Suspect]
     Dosage: 1 DF, (4mg/5ml, once per 28 days)
     Dates: start: 20111129
  3. ZOMETA [Suspect]
     Dosage: 1 DF, (4mg/5ml, once per 28 days)
     Dates: start: 20120920
  4. ZOMETA [Suspect]
     Dosage: 1 DF, (4mg/5ml, once per 28 days)Iv in 20 mins
     Dates: start: 20121018
  5. SIMVASTATIN [Concomitant]
     Dosage: 40mg 1x1
  6. DIOVAN [Concomitant]
     Dosage: 80mg 1x1
  7. DIOVAN [Concomitant]
     Dosage: 160 mg, 1x1
  8. BICALUTAMIDE [Concomitant]
     Dosage: 50mg 1x1
  9. FORADIL [Concomitant]
     Dosage: 12 ug 2x2 inhalations
  10. TEMAZEPAM [Concomitant]
     Dosage: 20 mg as needed
  11. ACETYLCYSTEINE [Concomitant]
     Dosage: 600 mg effervescent tablet 1x1
  12. SYMBICORT [Concomitant]
     Dosage: UNK UKN, UNK
  13. SYMBICORT [Concomitant]
     Dosage: 400/12 2x 1 puff
  14. SPIRIVA [Concomitant]
     Dosage: 2.5 ug 1x2
  15. ZALDIAR [Concomitant]
  16. DOXYCYCLINE [Concomitant]
     Dosage: 10 mg, UNK
  17. PANTOZOL [Concomitant]
     Dosage: 40 mg 1x1
  18. PREDNISOLON [Concomitant]
     Dosage: 5mg 2x1
  19. AVODART [Concomitant]
     Dosage: 0.5mg 1x1
  20. FORADILE [Concomitant]
     Dosage: 12ug/dosis 2x1 inhalation
  21. CASODEX [Concomitant]
     Dosage: 50 mg, per day
  22. ZOLADEX [Concomitant]
  23. PARACETAMOL [Concomitant]
     Dosage: 500 mg, 4x2

REACTIONS (7)
  - General physical health deterioration [Not Recovered/Not Resolved]
  - Fatigue [Not Recovered/Not Resolved]
  - Bone pain [Not Recovered/Not Resolved]
  - Neoplasm progression [Unknown]
  - Malignant neoplasm progression [Unknown]
  - Gait disturbance [Unknown]
  - Back pain [Not Recovered/Not Resolved]
